FAERS Safety Report 6989674-9 (Version None)
Quarter: 2010Q3

REPORT INFORMATION
  Report Type: 
  Country: None (occurrence: None)
  Receive Date: 20100916
  Receipt Date: 20100127
  Transmission Date: 20110219
  Serious: Yes (Other)
  Sender: FDA-Public Use
  Company Number: US-PFIZER INC-2010012359

PATIENT
  Sex: Female
  Weight: 54.422 kg

DRUGS (5)
  1. LYRICA [Suspect]
     Indication: FIBROMYALGIA
     Dosage: 50 MG, 3X/DAY
     Dates: start: 20090101
  2. PAMELOR [Concomitant]
     Indication: MIGRAINE
  3. CAFFEINE [Concomitant]
     Indication: MIGRAINE
  4. PANLOR SS [Concomitant]
     Indication: MIGRAINE
     Dosage: UNK
     Route: 048
  5. FIBERCON [Concomitant]

REACTIONS (5)
  - EUPHORIC MOOD [None]
  - FEELING DRUNK [None]
  - HEADACHE [None]
  - MIGRAINE [None]
  - POISONING [None]
